FAERS Safety Report 6710540-8 (Version None)
Quarter: 2010Q2

REPORT INFORMATION
  Report Type: 
  Country: None (occurrence: None)
  Receive Date: 20100504
  Receipt Date: 20100427
  Transmission Date: 20101027
  Serious: Yes (Other)
  Sender: FDA-Public Use
  Company Number: US-GILEAD-2010-0028599

PATIENT
  Sex: Female
  Weight: 72.64 kg

DRUGS (18)
  1. LETAIRIS [Suspect]
     Indication: PULMONARY ARTERIAL HYPERTENSION
     Route: 048
     Dates: start: 20090904
  2. TRACLEER [Concomitant]
  3. REVATIO [Concomitant]
  4. REMODULIN [Concomitant]
  5. LISINOPRIL [Concomitant]
  6. AMITRIPTYLINE HCL [Concomitant]
  7. DIGOXIN [Concomitant]
  8. COREG [Concomitant]
  9. WARFARIN SODIUM [Concomitant]
  10. CLONIDINE [Concomitant]
  11. LEVOTHYROXINE [Concomitant]
  12. LEVOTHROID [Concomitant]
  13. GABAPENTIN [Concomitant]
  14. KETAMINE [Concomitant]
  15. LECITHIN [Concomitant]
  16. LIDOCAINE [Concomitant]
  17. POLOXAMER GEL [Concomitant]
  18. STERILE WATER [Concomitant]

REACTIONS (3)
  - FACE INJURY [None]
  - FALL [None]
  - LOSS OF CONSCIOUSNESS [None]
